FAERS Safety Report 6030985-1 (Version None)
Quarter: 2009Q1

REPORT INFORMATION
  Report Type: 
  Country: None (occurrence: None)
  Receive Date: 20090106
  Receipt Date: 20090106
  Transmission Date: 20090719
  Serious: No
  Sender: FDA-Public Use
  Company Number: None

PATIENT
  Age: 57 Year
  Sex: Female
  Weight: 166.9237 kg

DRUGS (1)
  1. XOPENEX HFA [Suspect]
     Indication: ASTHMA
     Dates: start: 20070101, end: 20081231

REACTIONS (9)
  - ANXIETY [None]
  - BLOOD PRESSURE INCREASED [None]
  - BURNING SENSATION [None]
  - DYSPNOEA [None]
  - HEADACHE [None]
  - PALPITATIONS [None]
  - SENSATION OF PRESSURE [None]
  - SWELLING [None]
  - TREMOR [None]
